FAERS Safety Report 7286630-0 (Version None)
Quarter: 2011Q1

REPORT INFORMATION
  Report Type: 
  Country: None (occurrence: None)
  Receive Date: 20110210
  Receipt Date: 20110126
  Transmission Date: 20110831
  Serious: Yes (Life-Threatening, Other)
  Sender: FDA-Public Use
  Company Number: DE-ACTELION-A-US2011-44852

PATIENT

DRUGS (2)
  1. VENTAVIS [Suspect]
     Indication: ISCHAEMIC LIMB PAIN
     Dosage: UNK
     Route: 042
     Dates: start: 20110104, end: 20110117
  2. VENTAVIS [Suspect]
     Dosage: UNK
     Route: 055
     Dates: start: 20090101

REACTIONS (4)
  - RASH MACULAR [None]
  - CHILLS [None]
  - ANAPHYLACTIC REACTION [None]
  - PYREXIA [None]
